FAERS Safety Report 23399405 (Version 1)
Quarter: 2024Q1

REPORT INFORMATION
  Report Type: Spontaneous
  Country: AU (occurrence: AU)
  Receive Date: 20240113
  Receipt Date: 20240113
  Transmission Date: 20240410
  Serious: Yes (Other)
  Sender: FDA-Public Use
  Company Number: AU-AMGEN-AUSSP2024006343

PATIENT
  Age: 58 Year
  Sex: Male

DRUGS (3)
  1. ADALIMUMAB [Suspect]
     Active Substance: ADALIMUMAB\ISOPROPYL ALCOHOL
     Indication: Cardiac sarcoidosis
     Dosage: 40 MILLIGRAM
     Route: 058
  2. PREDNISOLONE [Concomitant]
     Active Substance: PREDNISOLONE
     Dosage: UNK
  3. MYCOPHENOLIC ACID [Concomitant]
     Active Substance: MYCOPHENOLIC ACID
     Route: 065

REACTIONS (5)
  - Ventricular tachycardia [Recovering/Resolving]
  - Cardiac failure congestive [Not Recovered/Not Resolved]
  - Injury [Unknown]
  - Infection [Unknown]
  - Unevaluable event [Unknown]
